FAERS Safety Report 8410208-6 (Version None)
Quarter: 2012Q2

REPORT INFORMATION
  Report Type: 
  Country: None (occurrence: None)
  Receive Date: 20120323
  Receipt Date: 20111005
  Transmission Date: 20120825
  Serious: Yes (Hospitalization)
  Sender: FDA-Public Use
  Company Number: 163-21880-11100743

PATIENT
  Age: 58 Year
  Sex: Female

DRUGS (4)
  1. REVLIMID [Suspect]
     Indication: MULTIPLE MYELOMA
     Dosage: 15 MG, PO 10 MG, 1 IN 1 D, PO 5 MG, 1 IN 1 D, PO 100 MG, 4 IN 1 D, PO
     Route: 048
     Dates: start: 20100601
  2. REVLIMID [Suspect]
     Indication: MULTIPLE MYELOMA
     Dosage: 15 MG, PO 10 MG, 1 IN 1 D, PO 5 MG, 1 IN 1 D, PO 100 MG, 4 IN 1 D, PO
     Route: 048
     Dates: start: 20090701
  3. REVLIMID [Suspect]
     Indication: MULTIPLE MYELOMA
     Dosage: 15 MG, PO 10 MG, 1 IN 1 D, PO 5 MG, 1 IN 1 D, PO 100 MG, 4 IN 1 D, PO
     Route: 048
     Dates: start: 20090401
  4. REVLIMID [Suspect]
     Indication: MULTIPLE MYELOMA
     Dosage: 15 MG, PO 10 MG, 1 IN 1 D, PO 5 MG, 1 IN 1 D, PO 100 MG, 4 IN 1 D, PO
     Route: 048
     Dates: start: 20091101

REACTIONS (1)
  - MULTIPLE MYELOMA [None]
